FAERS Safety Report 6449353-3 (Version None)
Quarter: 2009Q4

REPORT INFORMATION
  Report Type: 
  Country: None (occurrence: None)
  Receive Date: 20091120
  Receipt Date: 20091111
  Transmission Date: 20100525
  Serious: Yes (Life-Threatening)
  Sender: FDA-Public Use
  Company Number: PH-TYCO HEALTHCARE/MALLINCKRODT-T200902088

PATIENT
  Sex: Female

DRUGS (3)
  1. OPTIRAY 350 [Suspect]
     Indication: COMPUTERISED TOMOGRAM THORAX
     Dosage: TEST DOSE
     Route: 042
     Dates: start: 20091017, end: 20091017
  2. OPTIRAY 350 [Suspect]
     Dosage: 70 ML, SINGLE
     Route: 042
     Dates: start: 20091017, end: 20091017
  3. SODIUM CHLORIDE [Suspect]
     Indication: INTRAVENOUS CATHETER MANAGEMENT
     Dosage: 10 ML, SINGLE
     Dates: start: 20091017, end: 20091017

REACTIONS (3)
  - CARDIO-RESPIRATORY ARREST [None]
  - DYSPNOEA [None]
  - UNRESPONSIVE TO STIMULI [None]
